FAERS Safety Report 10993018 (Version 1)
Quarter: 2015Q2

REPORT INFORMATION
  Report Type: Spontaneous
  Country: CN (occurrence: CN)
  Receive Date: 20150406
  Receipt Date: 20150406
  Transmission Date: 20150821
  Serious: Yes (Other)
  Sender: FDA-Public Use
  Company Number: CN-MYLANLABS-2015M1010923

PATIENT

DRUGS (16)
  1. BICALUTAMIDE. [Interacting]
     Active Substance: BICALUTAMIDE
     Route: 065
  2. ACARBOSE. [Concomitant]
     Active Substance: ACARBOSE
     Route: 065
  3. AMLODIPINE [Concomitant]
     Active Substance: AMLODIPINE BESYLATE
     Route: 065
  4. MEGESTROL [Interacting]
     Active Substance: MEGESTROL
     Route: 065
  5. ISOSORBIDE DINITRATE. [Interacting]
     Active Substance: ISOSORBIDE DINITRATE
     Route: 065
  6. ESTAZOLAM. [Concomitant]
     Active Substance: ESTAZOLAM
     Route: 065
  7. CLOPIDOGREL [Concomitant]
     Active Substance: CLOPIDOGREL BISULFATE
     Route: 065
  8. PANTOPRAZOLE [Interacting]
     Active Substance: PANTOPRAZOLE SODIUM
     Route: 065
  9. TAMSULOSIN [Interacting]
     Active Substance: TAMSULOSIN
     Route: 065
  10. CICLOSPORIN [Interacting]
     Active Substance: CYCLOSPORINE
     Indication: APLASIA PURE RED CELL
     Route: 065
     Dates: start: 201306
  11. ALPROSTADIL. [Concomitant]
     Active Substance: ALPROSTADIL
     Route: 065
  12. IRBESARTAN. [Concomitant]
     Active Substance: IRBESARTAN
     Route: 065
  13. ATORVASTATIN [Suspect]
     Active Substance: ATORVASTATIN
     Dosage: 20MG, ONCE EVERY NIGHT
     Route: 065
     Dates: start: 2011
  14. AMBROXOL [Concomitant]
     Active Substance: AMBROXOL
     Route: 065
  15. PHOSPHOLIPIDS [Concomitant]
     Active Substance: OMEGA-3 FATTY ACIDS
     Route: 065
  16. CICLOSPORIN [Interacting]
     Active Substance: CYCLOSPORINE
     Route: 065
     Dates: start: 2004

REACTIONS (2)
  - Myositis [Recovering/Resolving]
  - Drug interaction [Recovering/Resolving]
